FAERS Safety Report 24434340 (Version 2)
Quarter: 2024Q4

REPORT INFORMATION
  Report Type: Spontaneous
  Country: BR (occurrence: BR)
  Receive Date: 20241014
  Receipt Date: 20241021
  Transmission Date: 20250115
  Serious: Yes (Hospitalization, Other)
  Sender: JOHNSON AND JOHNSON
  Company Number: BR-JNJFOC-20241014615

PATIENT
  Age: 20 Year
  Sex: Male
  Weight: 79 kg

DRUGS (4)
  1. RISPERDAL [Suspect]
     Active Substance: RISPERIDONE
     Indication: Schizophrenia
     Route: 065
  2. RISPERIDONE [Suspect]
     Active Substance: RISPERIDONE
     Indication: Schizophrenia
     Route: 065
  3. AXONIUM [Concomitant]
     Indication: Schizophrenia
     Route: 048
  4. CLOTRIMAZOLE [Concomitant]
     Active Substance: CLOTRIMAZOLE

REACTIONS (7)
  - Drug dependence [Unknown]
  - Delirium [Unknown]
  - Schizophrenia [Unknown]
  - Persecutory delusion [Unknown]
  - Adverse drug reaction [Unknown]
  - Drug ineffective [Unknown]
  - Condition aggravated [Unknown]
